FAERS Safety Report 24346149 (Version 1)
Quarter: 2024Q3

REPORT INFORMATION
  Report Type: Spontaneous
  Country: US (occurrence: US)
  Receive Date: 20240921
  Receipt Date: 20240921
  Transmission Date: 20241017
  Serious: No
  Sender: AUROBINDO
  Company Number: US-AUROBINDO-AUR-APL-2024-017496

PATIENT
  Sex: Female

DRUGS (1)
  1. ALENDRONATE SODIUM [Suspect]
     Active Substance: ALENDRONATE SODIUM
     Indication: Product used for unknown indication
     Dosage: UNK UNK, EVERY WEEK (ONCE A WEEK SINCE 2017)
     Route: 065
     Dates: start: 2017

REACTIONS (9)
  - Abdominal discomfort [Unknown]
  - Fatigue [Unknown]
  - Nausea [Recovered/Resolved]
  - Myalgia [Recovered/Resolved]
  - Vomiting [Unknown]
  - Abdominal pain upper [Unknown]
  - Diarrhoea [Not Recovered/Not Resolved]
  - Feeding disorder [Unknown]
  - Product quality issue [Unknown]

NARRATIVE: CASE EVENT DATE: 20240204
